FAERS Safety Report 9291140 (Version 1)
Quarter: 2012Q4

REPORT INFORMATION
  Report Type: Spontaneous
  Country: US (occurrence: None)
  Receive Date: 20121009
  Receipt Date: 20121009
  Transmission Date: 20130627
  Serious: Yes (Other)
  Sender: FDA-Public Use
  Company Number: 2011MA003365

PATIENT
  Sex: Female
  Weight: 117.94 kg

DRUGS (29)
  1. METOCLOPRAMIDE TABLETS USP, 10 MG (PUREPAC) [Suspect]
     Indication: ACID REFLUX
     Dates: start: 20080726, end: 20090804
  2. METOCLOPRAMIDE TABLETS USP, 10 MG (PUREPAC) [Suspect]
     Indication: GERD
     Dates: start: 20080726, end: 20090804
  3. ALPRAZOLAM [Concomitant]
  4. AMITRIPTYLINE [Concomitant]
  5. AMPHETAMINE SALTS [Concomitant]
  6. ATENOLOL [Concomitant]
  7. AZITHROMYCIN [Concomitant]
  8. BUPROPION [Concomitant]
  9. CIPROFLOXIN [Concomitant]
  10. CITALOPRAM [Concomitant]
  11. CLONAZEPAM [Concomitant]
  12. CYANOCOBALAMIN [Concomitant]
  13. DESIPRAMINE [Concomitant]
  14. FAMOTIDINE [Concomitant]
  15. FLUOXETINE [Concomitant]
  16. HYDROCODONE W/APAP [Concomitant]
  17. LORAZEPAM [Concomitant]
  18. MELOXICAM [Concomitant]
  19. NEXIUM [Concomitant]
  20. PANTOPRAZOLE [Concomitant]
  21. PRISTIQ [Concomitant]
  22. PROMETHAZINE [Concomitant]
  23. SIMVASTATIN [Concomitant]
  24. SINGULAIR [Concomitant]
  25. TOPAMAX [Concomitant]
  26. TOPIRAMATE [Concomitant]
  27. TRIAMTERENE/HCTZ [Concomitant]
  28. VAGIFEM [Concomitant]
  29. ZOLPIDEM [Concomitant]

REACTIONS (5)
  - Tremor [None]
  - Emotional disorder [None]
  - Amnesia [None]
  - Memory impairment [None]
  - Dizziness [None]
